FAERS Safety Report 19968512 (Version 5)
Quarter: 2022Q3

REPORT INFORMATION
  Report Type: Report from Study
  Country: US (occurrence: US)
  Receive Date: 20211019
  Receipt Date: 20220705
  Transmission Date: 20221027
  Serious: Yes (Hospitalization, Other)
  Sender: FDA-Public Use
  Company Number: US-TAKEDA-2021TUS062658

PATIENT
  Age: 13 Year
  Sex: Female

DRUGS (27)
  1. TEDUGLUTIDE [Suspect]
     Active Substance: TEDUGLUTIDE
     Indication: Short-bowel syndrome
     Dosage: 10 MILLIGRAM, QD
     Route: 042
     Dates: start: 20190912, end: 20210326
  2. TEDUGLUTIDE [Suspect]
     Active Substance: TEDUGLUTIDE
     Indication: Short-bowel syndrome
     Dosage: 10 MILLIGRAM, QD
     Route: 042
     Dates: start: 20190912, end: 20210326
  3. TEDUGLUTIDE [Suspect]
     Active Substance: TEDUGLUTIDE
     Indication: Short-bowel syndrome
     Dosage: 10 MILLIGRAM, QD
     Route: 042
     Dates: start: 20190912, end: 20210326
  4. TEDUGLUTIDE [Suspect]
     Active Substance: TEDUGLUTIDE
     Indication: Short-bowel syndrome
     Dosage: 10 MILLIGRAM, QD
     Route: 042
     Dates: start: 20190912, end: 20210326
  5. PIPERACILLIN [Concomitant]
     Active Substance: PIPERACILLIN
     Indication: Bacteraemia
     Dosage: 3000 MILLIGRAM, Q6HR
     Route: 042
     Dates: start: 20210722, end: 20210729
  6. CIPROFLOXACIN [Concomitant]
     Active Substance: CIPROFLOXACIN
     Indication: Otitis externa
     Dosage: 4 UNK, BID
     Route: 042
  7. CIPROFLOXACIN [Concomitant]
     Active Substance: CIPROFLOXACIN
     Dosage: 4 GTT DROPS
     Route: 050
     Dates: start: 20210721, end: 20210729
  8. CIPROFLOXACIN [Concomitant]
     Active Substance: CIPROFLOXACIN
     Dosage: 400 MILLIGRAM, TID
     Route: 042
     Dates: start: 20210727, end: 20210728
  9. ACETAMINOPHEN [Concomitant]
     Active Substance: ACETAMINOPHEN
     Dosage: 650 MILLIGRAM
     Route: 048
  10. ACETAMINOPHEN [Concomitant]
     Active Substance: ACETAMINOPHEN
     Dosage: 650 MILLIGRAM, QD
     Route: 048
     Dates: start: 20210721, end: 20210721
  11. LEVOFLOXACIN [Concomitant]
     Active Substance: LEVOFLOXACIN
     Indication: Bacteraemia
     Dosage: 500 MILLIGRAM, QD
     Route: 048
     Dates: start: 20210728, end: 20210729
  12. RIFAXIMIN [Concomitant]
     Active Substance: RIFAXIMIN
     Indication: Bacterial infection
     Dosage: 200 MILLIGRAM, BID
     Route: 050
     Dates: start: 20200227
  13. RIFAXIMIN [Concomitant]
     Active Substance: RIFAXIMIN
     Dosage: UNK, MONTHLY
     Route: 065
     Dates: start: 202203
  14. MELATONIN [Concomitant]
     Active Substance: MELATONIN
     Dosage: 5 MILLIGRAM, QD
     Route: 050
     Dates: start: 2020
  15. GASEX [Concomitant]
     Dosage: UNK
  16. MIRALAX [Concomitant]
     Active Substance: POLYETHYLENE GLYCOL 3350
     Dosage: 17 MILLIGRAM
     Route: 048
     Dates: start: 20170414
  17. LOVENOX [Concomitant]
     Active Substance: ENOXAPARIN SODIUM
     Dosage: 35 MILLIGRAM, QD
     Route: 058
     Dates: start: 201907, end: 2020
  18. LOVENOX [Concomitant]
     Active Substance: ENOXAPARIN SODIUM
     Dosage: 40 UNK
     Route: 058
     Dates: start: 2020
  19. VANCOMYCIN [Concomitant]
     Active Substance: VANCOMYCIN
     Indication: Device related infection
  20. ZOSYN [Concomitant]
     Active Substance: PIPERACILLIN SODIUM\TAZOBACTAM SODIUM
     Indication: Abdominal infection
     Dosage: 3000 MILLIGRAM, QD
     Route: 042
     Dates: start: 20200713, end: 20200713
  21. ZOSYN [Concomitant]
     Active Substance: PIPERACILLIN SODIUM\TAZOBACTAM SODIUM
     Indication: Device related infection
     Dosage: 3000 MILLIGRAM, QD
     Route: 042
     Dates: start: 20200714, end: 20200714
  22. Sulfatrim pediatric [Concomitant]
     Indication: Small intestinal obstruction
     Dosage: 200 MILLIGRAM, BID
     Route: 050
     Dates: start: 20190731
  23. NYSTATIN [Concomitant]
     Active Substance: NYSTATIN
     Indication: Rash
     Dosage: UNK
     Route: 061
     Dates: start: 20190119
  24. CLARITIN [Concomitant]
     Active Substance: LORATADINE
     Dosage: UNK
     Route: 050
  25. PIPERACILLIN AND TAZOBACTAM [Concomitant]
     Active Substance: PIPERACILLIN SODIUM\TAZOBACTAM SODIUM
     Dosage: 3000 MILLIGRAM, QID
     Route: 042
     Dates: start: 20210722, end: 20210729
  26. DEXAMETHASONE [Concomitant]
     Active Substance: DEXAMETHASONE
     Indication: Otitis externa
     Dosage: 4 GTT DROPS, BID
     Route: 050
     Dates: start: 20210721, end: 20210729
  27. BACTRIM [Concomitant]
     Active Substance: SULFAMETHOXAZOLE\TRIMETHOPRIM
     Indication: Bacterial infection
     Dosage: UNK UNK, MONTHLY
     Route: 065

REACTIONS (1)
  - Vascular device infection [Recovered/Resolved]

NARRATIVE: CASE EVENT DATE: 20210721
